FAERS Safety Report 6223279-2 (Version None)
Quarter: 2009Q2

REPORT INFORMATION
  Report Type: 
  Country: None (occurrence: None)
  Receive Date: 20090611
  Receipt Date: 20090601
  Transmission Date: 20091009
  Serious: Yes (Hospitalization, Other)
  Sender: FDA-Public Use
  Company Number: US-ELI_LILLY_AND_COMPANY-US200905002399

PATIENT
  Sex: Female
  Weight: 86.168 kg

DRUGS (5)
  1. HUMULIN N [Suspect]
  2. ANTIBIOTICS [Concomitant]
     Indication: PNEUMONIA
  3. COUMADIN [Concomitant]
     Indication: THROMBOSIS
  4. ZITHROMAX [Concomitant]
  5. MUCINEX [Concomitant]

REACTIONS (4)
  - CENTRAL VENOUS CATHETERISATION [None]
  - DEEP VEIN THROMBOSIS [None]
  - LUNG DISORDER [None]
  - PNEUMONIA [None]
